FAERS Safety Report 4641151-6 (Version None)
Quarter: 2005Q2

REPORT INFORMATION
  Report Type: 
  Country: None (occurrence: None)
  Receive Date: 20050421
  Receipt Date: 20050415
  Transmission Date: 20051028
  Serious: Yes (Other)
  Sender: FDA-Public Use
  Company Number: US-BRISTOL-MYERS SQUIBB COMPANY-12936241

PATIENT
  Sex: Female

DRUGS (5)
  1. ESTRACE [Suspect]
  2. ESTRADIOL [Suspect]
  3. PROVERA [Suspect]
  4. MEDROXYPROGESTERONE [Suspect]
  5. ORTHO TRI-CYCLEN [Suspect]

REACTIONS (4)
  - ANXIETY [None]
  - DEPRESSION [None]
  - SYSTEMIC LUPUS ERYTHEMATOSUS [None]
  - THROMBOSIS [None]
